FAERS Safety Report 15034240 (Version 1)
Quarter: 2018Q2

REPORT INFORMATION
  Report Type: Other
  Country: US (occurrence: US)
  Receive Date: 20180620
  Receipt Date: 20180620
  Transmission Date: 20180711
  Serious: No
  Sender: FDA-Public Use
  Company Number: US-GLENMARK PHARMACEUTICALS-2018GMK033937

PATIENT

DRUGS (3)
  1. ATOMOXETINE HCL CAPSULES [Suspect]
     Active Substance: ATOMOXETINE HYDROCHLORIDE
     Indication: PERSONALITY DISORDER
     Dosage: 60 MG, QD
     Route: 048
     Dates: start: 201709, end: 201801
  2. ATOMOXETINE HCL CAPSULES [Suspect]
     Active Substance: ATOMOXETINE HYDROCHLORIDE
     Indication: ATTENTION DEFICIT/HYPERACTIVITY DISORDER
     Dosage: 40 MG, QD
     Route: 048
     Dates: start: 201709, end: 201801
  3. ATOMOXETINE HCL CAPSULES [Suspect]
     Active Substance: ATOMOXETINE HYDROCHLORIDE
     Dosage: 18 MG, QD
     Route: 048
     Dates: start: 201709, end: 201801

REACTIONS (5)
  - Product substitution issue [Unknown]
  - Drug effect incomplete [Unknown]
  - General physical health deterioration [Recovered/Resolved]
  - Appetite disorder [Recovered/Resolved]
  - Patient uncooperative [Recovered/Resolved]
